FAERS Safety Report 7673630-1 (Version None)
Quarter: 2011Q3

REPORT INFORMATION
  Report Type: 
  Country: None (occurrence: None)
  Receive Date: 20110810
  Receipt Date: 20110728
  Transmission Date: 20111222
  Serious: Yes (Hospitalization)
  Sender: FDA-Public Use
  Company Number: PHHY2010JP69753

PATIENT
  Sex: Male

DRUGS (22)
  1. PREDNISOLONE [Suspect]
     Dosage: 12 MG, UNK
     Route: 048
     Dates: start: 20090827, end: 20090902
  2. PREDNISOLONE [Suspect]
     Dosage: 10 MG, UNK
     Route: 048
     Dates: start: 20090903, end: 20090909
  3. PREDNISOLONE [Suspect]
     Dosage: UNK
     Dates: start: 20100206, end: 20100927
  4. TASIGNA [Suspect]
     Dosage: 200 MG
     Route: 048
     Dates: start: 20100613, end: 20101015
  5. PREDNISOLONE [Suspect]
     Dosage: 2.5 MG, UNK
     Route: 048
     Dates: start: 20091225, end: 20100121
  6. PREDNISOLONE [Suspect]
     Dosage: 1 MG, QD
     Route: 048
     Dates: start: 20100206, end: 20100927
  7. TASIGNA [Suspect]
     Dosage: UNK
     Route: 048
     Dates: start: 20091211, end: 20100107
  8. TASIGNA [Suspect]
     Dosage: 400 MG
     Route: 048
     Dates: start: 20100108, end: 20100927
  9. PREDNISOLONE [Suspect]
     Dosage: 2 MG, UNK
     Route: 048
     Dates: start: 20100122, end: 20100205
  10. PREDNISOLONE [Suspect]
     Dosage: UNK
     Dates: start: 20101013
  11. TASIGNA [Suspect]
     Indication: CHRONIC MYELOID LEUKAEMIA
     Dosage: 200 MG, QD
     Route: 048
     Dates: start: 20090730, end: 20091112
  12. PREDNISOLONE [Suspect]
     Dosage: 17 MG, UNK
     Route: 048
     Dates: start: 20090730, end: 20090812
  13. PREDNISOLONE [Suspect]
     Dosage: 1 MG, QD
     Dates: start: 20101013
  14. TASIGNA [Suspect]
     Dosage: UNK
     Route: 048
     Dates: start: 20091113, end: 20091210
  15. TASIGNA [Suspect]
     Dosage: 400 MG
     Route: 048
     Dates: start: 20101016
  16. PREDNISOLONE [Suspect]
     Dosage: 2 MG, UNK
     Route: 048
     Dates: start: 20091211, end: 20091224
  17. TASIGNA [Suspect]
     Dosage: 200 MG, QD
     Route: 048
     Dates: start: 20110204
  18. TASIGNA [Suspect]
     Dosage: 400 MG, QD
     Route: 048
     Dates: start: 20110603
  19. PREDNISOLONE [Suspect]
     Dosage: 16 MG, UNK
     Route: 048
     Dates: start: 20090813, end: 20090826
  20. PREDNISOLONE [Suspect]
     Dosage: 7 MG, UNK
     Route: 048
     Dates: start: 20090910, end: 20090923
  21. PREDNISOLONE [Suspect]
     Dosage: 5 MG, UNK
     Route: 048
     Dates: start: 20090924, end: 20091112
  22. PREDNISOLONE [Suspect]
     Dosage: 2.5 MG, UNK
     Route: 048
     Dates: start: 20091113, end: 20091210

REACTIONS (3)
  - DUODENAL ULCER PERFORATION [None]
  - EOSINOPHIL COUNT INCREASED [None]
  - LIPASE INCREASED [None]
